FAERS Safety Report 22694820 (Version 4)
Quarter: 2024Q2

REPORT INFORMATION
  Report Type: Spontaneous
  Country: US (occurrence: US)
  Receive Date: 20230712
  Receipt Date: 20240625
  Transmission Date: 20240716
  Serious: Yes (Hospitalization)
  Sender: FDA-Public Use
  Company Number: US-SA-SAC20230711000098

PATIENT
  Age: 63 Year
  Sex: Female
  Weight: 100 kg

DRUGS (32)
  1. DUPIXENT [Suspect]
     Active Substance: DUPILUMAB
     Indication: Dermatitis atopic
     Dosage: 300 MG, QOW
     Route: 058
     Dates: start: 20221120
  2. DUPIXENT [Suspect]
     Active Substance: DUPILUMAB
     Indication: Eczema
  3. HYDROCHLOROTHIAZIDE [Concomitant]
     Active Substance: HYDROCHLOROTHIAZIDE
     Dosage: UNK
  4. HYDROCHLOROTHIAZIDE [Concomitant]
     Active Substance: HYDROCHLOROTHIAZIDE
  5. IMODIUM [Concomitant]
     Active Substance: LOPERAMIDE HYDROCHLORIDE
     Dosage: UNK
  6. IMODIUM [Concomitant]
     Active Substance: LOPERAMIDE HYDROCHLORIDE
  7. ATORVASTATIN CALCIUM [Concomitant]
     Active Substance: ATORVASTATIN CALCIUM
     Dosage: UNK
  8. ATORVASTATIN CALCIUM [Concomitant]
     Active Substance: ATORVASTATIN CALCIUM
  9. ATROVENT HFA [Concomitant]
     Active Substance: IPRATROPIUM BROMIDE
     Dosage: UNK
  10. ATROVENT HFA [Concomitant]
     Active Substance: IPRATROPIUM BROMIDE
  11. ALBUTEROL SULFATE [Concomitant]
     Active Substance: ALBUTEROL SULFATE
     Dosage: UNK
  12. ALBUTEROL SULFATE [Concomitant]
     Active Substance: ALBUTEROL SULFATE
  13. TRAZODONE HCL [Concomitant]
     Active Substance: TRAZODONE HYDROCHLORIDE
     Dosage: UNK
  14. EPIPEN [Concomitant]
     Active Substance: EPINEPHRINE
     Dosage: 0.3MG/0.3 AUTO INJCT
  15. EPIPEN [Concomitant]
     Active Substance: EPINEPHRINE
  16. METFORMIN HYDROCHLORIDE [Concomitant]
     Active Substance: METFORMIN HYDROCHLORIDE
     Dosage: UNK
  17. LISINOPRIL [Concomitant]
     Active Substance: LISINOPRIL
     Dosage: UNK
  18. LISINOPRIL [Concomitant]
     Active Substance: LISINOPRIL
  19. FLUOXETINE HYDROCHLORIDE [Concomitant]
     Active Substance: FLUOXETINE HYDROCHLORIDE
     Dosage: UNK
  20. FLUOXETINE HYDROCHLORIDE [Concomitant]
     Active Substance: FLUOXETINE HYDROCHLORIDE
  21. AMLODIPINE BESYLATE [Concomitant]
     Active Substance: AMLODIPINE BESYLATE
     Dosage: UNK
  22. AMLODIPINE BESYLATE [Concomitant]
     Active Substance: AMLODIPINE BESYLATE
  23. CLARITIN-D NOS [Concomitant]
     Active Substance: LORATADINE\PSEUDOEPHEDRINE SULFATE
     Dosage: UNK
  24. CLARITIN-D NOS [Concomitant]
     Active Substance: LORATADINE\PSEUDOEPHEDRINE SULFATE
  25. TRIAMCINOLONE ACETONIDE [Concomitant]
     Active Substance: TRIAMCINOLONE ACETONIDE
  26. TRIAMCINOLONE ACETONIDE [Concomitant]
     Active Substance: TRIAMCINOLONE ACETONIDE
  27. TACROLIMUS [Concomitant]
     Active Substance: TACROLIMUS
  28. TACROLIMUS [Concomitant]
     Active Substance: TACROLIMUS
  29. OZEMPIC [Concomitant]
     Active Substance: SEMAGLUTIDE
  30. OZEMPIC [Concomitant]
     Active Substance: SEMAGLUTIDE
  31. ASPIRIN [Concomitant]
     Active Substance: ASPIRIN
  32. ASPIRIN [Concomitant]
     Active Substance: ASPIRIN

REACTIONS (6)
  - Infection [Unknown]
  - Injection site exfoliation [Unknown]
  - Injection site mass [Unknown]
  - Eyelid rash [Unknown]
  - Injection site erythema [Unknown]
  - Injection site pruritus [Recovered/Resolved]

NARRATIVE: CASE EVENT DATE: 20230801
